FAERS Safety Report 16453527 (Version 1)
Quarter: 2019Q2

REPORT INFORMATION
  Report Type: Report from Study
  Country: None (occurrence: US)
  Receive Date: 20190619
  Receipt Date: 20190619
  Transmission Date: 20190711
  Serious: Yes (Hospitalization)
  Sender: FDA-Public Use
  Company Number: US-ABBVIE-18K-163-2489646-00

PATIENT
  Age: 79 Year
  Sex: Female
  Weight: 87.17 kg

DRUGS (2)
  1. VENCLEXTA [Suspect]
     Active Substance: VENETOCLAX
     Dosage: 4 TABS EVERY MORNING
     Route: 048
  2. VENCLEXTA [Suspect]
     Active Substance: VENETOCLAX
     Indication: ACUTE MYELOID LEUKAEMIA
     Dosage: 4 TABS EVERY MORNING
     Route: 048
     Dates: start: 201807, end: 20180913

REACTIONS (11)
  - Tongue disorder [Not Recovered/Not Resolved]
  - Memory impairment [Unknown]
  - Odynophagia [Unknown]
  - White blood cell count decreased [Unknown]
  - Dehydration [Unknown]
  - Immunodeficiency [Unknown]
  - Tongue ulceration [Not Recovered/Not Resolved]
  - Acute myeloid leukaemia [Unknown]
  - Intentional product use issue [Unknown]
  - Hypophagia [Unknown]
  - Fluid intake reduced [Unknown]

NARRATIVE: CASE EVENT DATE: 2018
